FAERS Safety Report 10219074 (Version 1)
Quarter: 2014Q2

REPORT INFORMATION
  Report Type: Spontaneous
  Country: JP (occurrence: JP)
  Receive Date: 20140605
  Receipt Date: 20140605
  Transmission Date: 20141212
  Serious: Yes (Death, Hospitalization, Other)
  Sender: FDA-Public Use
  Company Number: JP-PFIZER INC-2014153238

PATIENT
  Age: 73 Year
  Sex: Male

DRUGS (1)
  1. VORICONAZOLE [Suspect]
     Indication: PNEUMONIA FUNGAL
     Dosage: 400 MG, UNK

REACTIONS (4)
  - Trichosporon infection [Fatal]
  - Multi-organ failure [Fatal]
  - Anal fistula [Unknown]
  - Enterococcal infection [Unknown]
